FAERS Safety Report 9448618 (Version 3)
Quarter: 2013Q3

REPORT INFORMATION
  Report Type: Report from Study
  Country: GB (occurrence: GB)
  Receive Date: 20130808
  Receipt Date: 20130822
  Transmission Date: 20140515
  Serious: Yes (Hospitalization)
  Sender: FDA-Public Use
  Company Number: PHHO2013GB010234

PATIENT
  Age: 66 Year
  Sex: Male

DRUGS (6)
  1. ZOLEDRONATE [Suspect]
     Indication: METASTASES TO BONE
     Dosage: 40 MG,
     Route: 042
     Dates: start: 20130318
  2. DOCETAXEL [Suspect]
     Indication: METASTASES TO BONE
     Dosage: 140 MG, UNK
     Route: 042
     Dates: start: 20130318
  3. HORMONES [Concomitant]
  4. RAMIPRIL [Concomitant]
     Dosage: 5 MG, UNK
     Route: 048
  5. VITAMIN D [Concomitant]
  6. CALCIUM [Concomitant]

REACTIONS (2)
  - Neutropenic sepsis [Not Recovered/Not Resolved]
  - Adrenal insufficiency [Not Recovered/Not Resolved]
